FAERS Safety Report 9413487 (Version 1)
Quarter: 2013Q3

REPORT INFORMATION
  Report Type: Report from Study
  Country: JP (occurrence: JP)
  Receive Date: 20130722
  Receipt Date: 20130722
  Transmission Date: 20140515
  Serious: Yes (Other)
  Sender: FDA-Public Use
  Company Number: JP-OTSUKA-JP-2012-16921

PATIENT
  Age: 79 Year
  Sex: Female

DRUGS (11)
  1. SAMSCA [Suspect]
     Indication: FLUID RETENTION
     Dosage: 7.5 MG MILLIGRAM(S), QAM
     Route: 048
     Dates: start: 20121112, end: 20121118
  2. LASIX [Suspect]
     Indication: CARDIAC FAILURE
     Dosage: 20 MG MILLIGRAM(S), DAILY DOSE
     Route: 042
     Dates: start: 20121111
  3. NEOPHYLLINE [Suspect]
     Dosage: 250 MG MILLIGRAM(S), DAILY DOSE
     Route: 042
     Dates: start: 20121113
  4. BAYASPIRIN [Concomitant]
     Dosage: 100 MG MILLIGRAM(S), DAILY DOSE
     Route: 048
     Dates: end: 20121110
  5. REBAMIPIDE [Concomitant]
     Dosage: 100 MG MILLIGRAM(S), DAILY DOSE
     Route: 048
     Dates: end: 20121110
  6. OLMETEC [Concomitant]
     Dosage: 20 MG MILLIGRAM(S), DAILY DOSE
     Route: 048
  7. AMLODIPINE [Concomitant]
     Dosage: 10 MG MILLIGRAM(S), DAILY DOSE
     Route: 048
  8. SELOKEN [Concomitant]
     Dosage: 15 MG MILLIGRAM(S), DAILY DOSE
     Route: 048
     Dates: start: 20121110
  9. CEFTRIAXONE SODIUM [Concomitant]
     Dosage: 1 G GRAM(S), DAILY DOSE
     Route: 042
     Dates: start: 20121110
  10. SPIRIVA [Concomitant]
     Dosage: 2.5 MCG, DAILY DOSE
     Route: 055
     Dates: start: 20121111
  11. HOKUNALIN [Concomitant]
     Dosage: 2 DF DOSAGE FORM, DAILY DOSE
     Route: 061
     Dates: start: 20121113

REACTIONS (3)
  - Ventricular extrasystoles [Recovering/Resolving]
  - Atrial fibrillation [Recovered/Resolved]
  - Hyperuricaemia [Recovered/Resolved]
